FAERS Safety Report 8813079 (Version 2)
Quarter: 2013Q1

REPORT INFORMATION
  Report Type: Report from Study
  Country: US (occurrence: US)
  Receive Date: 20120927
  Receipt Date: 20121019
  Transmission Date: 20140127
  Serious: Yes (Hospitalization)
  Sender: FDA-Public Use
  Company Number: US-ASTRAZENECA-2012SE73696

PATIENT
  Age: 29536 Day
  Sex: Male

DRUGS (14)
  1. AZD6140 [Suspect]
     Indication: CORONARY ARTERY DISEASE
     Route: 048
     Dates: start: 20120627, end: 20120912
  2. AZD6140 [Suspect]
     Indication: CORONARY ARTERY DISEASE
     Route: 048
     Dates: start: 20120924
  3. PAROXETINE [Concomitant]
     Indication: DEPRESSION
     Route: 048
  4. NITROGLYCERIN [Concomitant]
     Indication: CHEST PAIN
     Route: 048
  5. OMEGA-3 FATTY ACIDS [Concomitant]
     Indication: HYPERLIPIDAEMIA
     Route: 048
  6. TRAZODONE [Concomitant]
     Indication: DEPRESSION
     Route: 048
  7. SIMVASTATIN [Concomitant]
     Indication: HYPERLIPIDAEMIA
     Route: 048
  8. LISINOPRIL [Concomitant]
     Indication: HYPERTENSION
     Route: 048
  9. NIACIN [Concomitant]
     Indication: HYPERLIPIDAEMIA
     Route: 048
  10. INSULIN [Concomitant]
     Indication: TYPE 2 DIABETES MELLITUS
     Route: 058
  11. CARVEDILOL [Concomitant]
     Indication: HYPERTENSION
     Route: 048
  12. EZETIMIBE [Concomitant]
     Indication: HYPERLIPIDAEMIA
     Route: 048
  13. RANITIDINE [Concomitant]
     Indication: GASTROOESOPHAGEAL REFLUX DISEASE
     Route: 048
  14. ASA [Concomitant]
     Route: 048
     Dates: start: 20110627

REACTIONS (2)
  - Bladder cancer [Not Recovered/Not Resolved]
  - Ureteric cancer [Not Recovered/Not Resolved]
